FAERS Safety Report 19198891 (Version 1)
Quarter: 2021Q2

REPORT INFORMATION
  Report Type: Spontaneous
  Country: US (occurrence: US)
  Receive Date: 20210430
  Receipt Date: 20210430
  Transmission Date: 20210717
  Serious: No
  Sender: FDA-Public Use
  Company Number: US-SA-2021SA136171

PATIENT
  Age: 46 Year
  Sex: Female

DRUGS (1)
  1. DUPIXENT [Suspect]
     Active Substance: DUPILUMAB
     Dosage: 300 MG
     Route: 058
     Dates: start: 202104

REACTIONS (9)
  - Hypoaesthesia [Unknown]
  - Chest discomfort [Unknown]
  - Pain [Unknown]
  - Contusion [Unknown]
  - Abdominal discomfort [Unknown]
  - Cough [Unknown]
  - Asthma [Unknown]
  - Malaise [Unknown]
  - Faeces hard [Unknown]

NARRATIVE: CASE EVENT DATE: 20210414
